FAERS Safety Report 7974559-1 (Version None)
Quarter: 2011Q4

REPORT INFORMATION
  Report Type: 
  Country: None (occurrence: None)
  Receive Date: 20111213
  Receipt Date: 20111202
  Transmission Date: 20120403
  Serious: Yes (Other)
  Sender: FDA-Public Use
  Company Number: US-JNJFOC-20111202089

PATIENT
  Sex: Female
  Weight: 71.67 kg

DRUGS (10)
  1. REMICADE [Suspect]
     Indication: PSORIATIC ARTHROPATHY
     Route: 042
  2. SYNTHROID [Concomitant]
     Route: 048
  3. COLTRASINE [Concomitant]
     Route: 048
  4. METHOTREXATE [Concomitant]
     Route: 048
  5. PLAQUENIL [Concomitant]
     Route: 048
  6. CELEBREX [Concomitant]
     Route: 048
  7. VITAMIN D [Concomitant]
     Route: 048
  8. ANTI-SEIZURE MEDICATION [Concomitant]
     Indication: MIGRAINE
  9. EFFEXOR [Concomitant]
     Route: 048
  10. FOLIC ACID [Concomitant]
     Route: 048

REACTIONS (2)
  - BEHCET'S SYNDROME [None]
  - SPINAL FUSION SURGERY [None]
